FAERS Safety Report 7611702-8 (Version None)
Quarter: 2011Q3

REPORT INFORMATION
  Report Type: 
  Country: None (occurrence: None)
  Receive Date: 20110715
  Receipt Date: 20110711
  Transmission Date: 20111222
  Serious: Yes (Hospitalization, Disabling, Other)
  Sender: FDA-Public Use
  Company Number: US-MERCK-1103USA00265

PATIENT
  Age: 57 Year
  Sex: Male
  Weight: 99 kg

DRUGS (13)
  1. FOSAMAX [Suspect]
     Route: 048
     Dates: start: 20011108, end: 20060430
  2. ACCOLATE [Concomitant]
     Route: 065
  3. MEVACOR [Concomitant]
     Route: 048
  4. VENTOLIN DS [Concomitant]
     Route: 065
  5. ADVAIR DISKUS 100/50 [Concomitant]
     Route: 065
  6. FLEXERIL [Concomitant]
     Route: 048
  7. FOSAMAX PLUS D [Suspect]
     Indication: OSTEOPOROSIS
     Route: 048
     Dates: start: 20060501, end: 20100101
  8. PREDNISONE [Concomitant]
     Route: 065
  9. LASIX [Concomitant]
     Route: 065
  10. VICODIN [Concomitant]
     Route: 065
  11. CENTRUM [Concomitant]
     Route: 065
  12. VASOTEC [Concomitant]
     Route: 048
  13. FOSAMAX [Suspect]
     Indication: OSTEOPOROSIS
     Route: 048
     Dates: start: 19970927, end: 20011107

REACTIONS (22)
  - PLEURAL EFFUSION [None]
  - THYROID NEOPLASM [None]
  - BACK PAIN [None]
  - FEMUR FRACTURE [None]
  - RIB FRACTURE [None]
  - HYPERTENSION [None]
  - HAEMORRHOIDS [None]
  - ARTHROPATHY [None]
  - ERECTILE DYSFUNCTION [None]
  - LEUKOCYTOSIS [None]
  - GASTROOESOPHAGEAL REFLUX DISEASE [None]
  - RADICULITIS LUMBOSACRAL [None]
  - SPINAL COMPRESSION FRACTURE [None]
  - DYSPNOEA [None]
  - MUSCULOSKELETAL CHEST PAIN [None]
  - RHINITIS ALLERGIC [None]
  - HIATUS HERNIA [None]
  - CHRONIC OBSTRUCTIVE PULMONARY DISEASE [None]
  - GOITRE [None]
  - THORACIC VERTEBRAL FRACTURE [None]
  - RECTAL HAEMORRHAGE [None]
  - IMPAIRED HEALING [None]
